FAERS Safety Report 13542696 (Version 1)
Quarter: 2017Q2

REPORT INFORMATION
  Report Type: Spontaneous
  Country: US (occurrence: US)
  Receive Date: 20170512
  Receipt Date: 20170512
  Transmission Date: 20170830
  Serious: Yes (Hospitalization)
  Sender: FDA-Public Use
  Company Number: US-ROCHE-710339

PATIENT
  Age: 67 Year
  Sex: Male

DRUGS (3)
  1. CISPLATIN. [Suspect]
     Active Substance: CISPLATIN
     Indication: HEAD AND NECK CANCER
     Dosage: DOSE AND FREQUENCY: NOT REPORTED
     Route: 065
  2. TAXOTERE [Suspect]
     Active Substance: DOCETAXEL
     Indication: HEAD AND NECK CANCER
     Dosage: DOSE AND FREQUENCY: NOT REPORTED
     Route: 065
  3. AVASTIN [Suspect]
     Active Substance: BEVACIZUMAB
     Indication: HEAD AND NECK CANCER
     Dosage: DOSE AND FREQUENCY: NOT REPORTED
     Route: 065

REACTIONS (1)
  - Dehydration [Recovering/Resolving]
